FAERS Safety Report 6822559-7 (Version None)
Quarter: 2010Q3

REPORT INFORMATION
  Report Type: 
  Country: None (occurrence: None)
  Receive Date: 20100708
  Receipt Date: 20100630
  Transmission Date: 20110219
  Serious: Yes (Hospitalization)
  Sender: FDA-Public Use
  Company Number: US-SANOFI-AVENTIS-2010SA038111

PATIENT
  Age: 76 Year
  Sex: Male

DRUGS (12)
  1. MULTAQ [Suspect]
     Indication: ATRIAL FIBRILLATION
     Route: 048
     Dates: start: 20100513
  2. METOPROLOL [Concomitant]
     Dates: end: 20100625
  3. LISINOPRIL [Concomitant]
     Dates: start: 20100622, end: 20100625
  4. CRESTOR [Concomitant]
  5. PLAVIX [Concomitant]
     Dates: start: 20070101
  6. COUMADIN [Concomitant]
     Dates: start: 20100601
  7. ACETAMINOPHEN [Concomitant]
     Indication: PAIN
  8. ULTRAM [Concomitant]
     Indication: PAIN
  9. TAMSULOSIN HCL [Concomitant]
  10. ADVAIR DISKUS 100/50 [Concomitant]
     Indication: CHRONIC OBSTRUCTIVE PULMONARY DISEASE
  11. IPRATROPIUM BROMIDE/SALBUTAMOL SULFATE [Concomitant]
     Indication: CHRONIC OBSTRUCTIVE PULMONARY DISEASE
  12. TIOTROPIUM [Concomitant]
     Indication: CHRONIC OBSTRUCTIVE PULMONARY DISEASE

REACTIONS (7)
  - ATRIAL FIBRILLATION [None]
  - DIZZINESS [None]
  - DYSPNOEA [None]
  - HYPOTENSION [None]
  - JOINT SWELLING [None]
  - LEFT VENTRICULAR DYSFUNCTION [None]
  - NAUSEA [None]
